FAERS Safety Report 16162409 (Version 1)
Quarter: 2019Q2

REPORT INFORMATION
  Report Type: Spontaneous
  Country: US (occurrence: US)
  Receive Date: 20190404
  Receipt Date: 20190404
  Transmission Date: 20190711
  Serious: Yes (Other)
  Sender: FDA-Public Use
  Company Number: None

PATIENT
  Age: 70 Year
  Sex: Female

DRUGS (8)
  1. ALBUTEROL HFA INHALER [Concomitant]
     Dates: start: 20190208
  2. CENTRUM SILVER [Concomitant]
     Active Substance: MINERALS\VITAMINS
     Dates: start: 20190208
  3. AMLODIPINE [Concomitant]
     Active Substance: AMLODIPINE BESYLATE
     Dates: start: 20190208
  4. HYDROXYUREA 500MG [Concomitant]
     Active Substance: HYDROXYUREA
     Dates: start: 20190208
  5. IBRANCE [Suspect]
     Active Substance: PALBOCICLIB
     Indication: BREAST CANCER
     Route: 048
     Dates: start: 20190216
  6. ASPIRIN 325MG [Concomitant]
     Active Substance: ASPIRIN
     Dates: start: 20190208
  7. VITAMIN C 500MG [Concomitant]
     Dates: start: 20190208
  8. LIPITOR [Concomitant]
     Active Substance: ATORVASTATIN CALCIUM
     Dates: start: 20190208

REACTIONS (1)
  - Muscle spasms [None]

NARRATIVE: CASE EVENT DATE: 20190404
